FAERS Safety Report 6989003-0 (Version None)
Quarter: 2010Q3

REPORT INFORMATION
  Report Type: 
  Country: None (occurrence: None)
  Receive Date: 20100916
  Receipt Date: 20091030
  Transmission Date: 20110219
  Serious: Yes (Life-Threatening, Hospitalization, Other)
  Sender: FDA-Public Use
  Company Number: DE-PFIZER INC-2009244581

PATIENT
  Sex: Female
  Weight: 60 kg

DRUGS (17)
  1. LYRICA [Suspect]
     Indication: PAIN
     Dosage: 150 MG, 1X/DAY
     Route: 048
     Dates: end: 20090723
  2. TOREM [Concomitant]
     Dosage: 10 UNK, 1X/DAY
     Route: 048
  3. LISINOPRIL [Concomitant]
     Dosage: 2.5 UNK, 1X/DAY
     Route: 048
  4. CARVEDILOL [Concomitant]
     Dosage: 6.25 UNK, 1X/DAY
     Route: 048
  5. FERRO SANOL [Concomitant]
     Dosage: 200 UNK, 1X/DAY
     Route: 048
  6. NULYTELY [Concomitant]
     Dosage: UNK
     Route: 048
  7. CALCIVIT D [Concomitant]
     Dosage: UNK
     Route: 048
  8. IBUPROFEN TABLETS [Concomitant]
     Dosage: 400 UNK, 3X/DAY; 1200 DAILY DOSE
     Route: 048
  9. PANTOPRAZOLE SODIUM [Concomitant]
     Dosage: UNK
     Route: 048
  10. NOVALGIN [Concomitant]
     Dosage: 1 G
  11. OXYGESIC [Concomitant]
     Indication: PAIN
     Dosage: 10 UNK, 2X/DAY; 20 DAILY DOSE
     Route: 048
  12. NALOXONE [Concomitant]
     Dosage: 5 UNK, 2X/DAY; 10 DAILY DOSE
     Route: 048
  13. CLEXANE [Concomitant]
     Dosage: 0.4 UNK, 1X/DAY
     Route: 058
  14. KONAKION [Concomitant]
     Dosage: 10 MG, 1X/DAY
  15. CAPROS ^MEDAC^ [Concomitant]
     Dosage: 10 UNK, 4X/DAY; 40 DAILY DOSE
     Route: 048
  16. ZINACEF [Concomitant]
     Dosage: 1.5 G, 2X/DAY
     Route: 042
  17. ARCOXIA [Concomitant]
     Indication: PAIN
     Dosage: UNK

REACTIONS (4)
  - CHEST PAIN [None]
  - EXTRADURAL HAEMATOMA [None]
  - KNEE ARTHROPLASTY [None]
  - TROPONIN INCREASED [None]
